FAERS Safety Report 5389255-7 (Version None)
Quarter: 2007Q3

REPORT INFORMATION
  Report Type: 
  Country: None (occurrence: None)
  Receive Date: 20070717
  Receipt Date: 20070711
  Transmission Date: 20080115
  Serious: Yes (Other)
  Sender: FDA-Public Use
  Company Number: B0476066A

PATIENT
  Age: 80 Year
  Sex: Male

DRUGS (11)
  1. FLUTIDE [Suspect]
     Indication: ASTHMA
     Route: 055
     Dates: start: 20040101
  2. SEREVENT [Suspect]
     Indication: ASTHMA
     Route: 055
     Dates: start: 20040101
  3. THEO-DUR [Concomitant]
     Route: 065
     Dates: start: 20060331
  4. PERDIPINE [Concomitant]
     Route: 065
     Dates: start: 20060331
  5. SELBEX [Concomitant]
     Route: 048
     Dates: start: 20060331
  6. SLOW-K [Concomitant]
     Route: 048
     Dates: start: 20060331
  7. PARIET [Concomitant]
     Route: 048
     Dates: start: 20060331
  8. CORTRIL [Concomitant]
     Route: 065
     Dates: start: 20060331
  9. FLORINEF [Concomitant]
     Route: 048
     Dates: start: 20060331
  10. DEPAS [Concomitant]
     Route: 048
     Dates: start: 20060331
  11. BUP-4 [Concomitant]
     Route: 048
     Dates: start: 20041122

REACTIONS (2)
  - EOSINOPHILIA [None]
  - STATUS ASTHMATICUS [None]
